FAERS Safety Report 12605721 (Version 2)
Quarter: 2016Q3

REPORT INFORMATION
  Report Type: Spontaneous
  Country: IL (occurrence: IL)
  Receive Date: 20160729
  Receipt Date: 20160812
  Transmission Date: 20161109
  Serious: Yes (Other)
  Sender: FDA-Public Use
  Company Number: IL-AMGEN-ISRSP2016096333

PATIENT
  Age: 84 Year
  Sex: Female

DRUGS (5)
  1. LUCENTIS [Concomitant]
     Active Substance: RANIBIZUMAB
  2. NORVASC [Concomitant]
     Active Substance: AMLODIPINE BESYLATE
  3. ENBREL [Suspect]
     Active Substance: ETANERCEPT
     Indication: PSORIASIS
     Dosage: 50 MG, WEEKLY
     Route: 058
     Dates: start: 2009
  4. ENALADEX [Concomitant]
     Active Substance: ENALAPRIL MALEATE
  5. CARDILOC [Concomitant]
     Active Substance: BISOPROLOL FUMARATE

REACTIONS (1)
  - Lymphoma [Unknown]

NARRATIVE: CASE EVENT DATE: 2015
